FAERS Safety Report 20013461 (Version 4)
Quarter: 2022Q2

REPORT INFORMATION
  Report Type: Spontaneous
  Country: US (occurrence: US)
  Receive Date: 20211029
  Receipt Date: 20220511
  Transmission Date: 20220720
  Serious: Yes (Hospitalization)
  Sender: FDA-Public Use
  Company Number: US-PFIZER INC-202101408183

PATIENT
  Age: 64 Year
  Sex: Female

DRUGS (1)
  1. INLYTA [Suspect]
     Active Substance: AXITINIB
     Indication: Neoplasm malignant
     Dosage: 5 MG
     Dates: start: 20211001, end: 2022

REACTIONS (6)
  - Device related infection [Unknown]
  - Sepsis [Unknown]
  - Neoplasm progression [Unknown]
  - Rectal spasm [Unknown]
  - Mucous stools [Unknown]
  - Diarrhoea [Unknown]
